FAERS Safety Report 7091558-5 (Version None)
Quarter: 2010Q4

REPORT INFORMATION
  Report Type: 
  Country: None (occurrence: None)
  Receive Date: 20101109
  Receipt Date: 20101027
  Transmission Date: 20110411
  Serious: Yes (Hospitalization, Other)
  Sender: FDA-Public Use
  Company Number: PHEH2005US09403

PATIENT
  Sex: Female

DRUGS (9)
  1. AREDIA [Suspect]
     Dosage: UNK, UNK
     Dates: start: 19960101, end: 20030201
  2. ZOMETA [Suspect]
     Indication: METASTASES TO BONE
     Dosage: 4 MG, Q4 WKS
     Dates: start: 20030109, end: 20050801
  3. PAXIL [Concomitant]
  4. FASLODEX [Concomitant]
     Dosage: UNK, UNK
     Dates: start: 20050201
  5. PREDNISONE [Concomitant]
  6. FEMARA [Concomitant]
     Dosage: 2.5 MG, QD
     Dates: start: 19960101, end: 20030201
  7. XELODA [Concomitant]
     Dosage: UNK, X 8
     Dates: start: 20030701, end: 20031201
  8. XELODA [Concomitant]
     Dosage: UNK, X 2
     Dates: start: 20040101, end: 20040201
  9. ANASTROZOLE [Concomitant]
     Dates: start: 20000101, end: 20050201

REACTIONS (43)
  - ABDOMINAL NEOPLASM [None]
  - ABDOMINAL PAIN [None]
  - ANIMAL BITE [None]
  - ARTHRALGIA [None]
  - BONE DEBRIDEMENT [None]
  - BONE DISORDER [None]
  - COLON NEOPLASM [None]
  - DECREASED INTEREST [None]
  - DEFAECATION URGENCY [None]
  - DENTAL CARE [None]
  - DENTAL CLEANING [None]
  - DENTAL OPERATION [None]
  - DEPRESSION [None]
  - EMOTIONAL DISTRESS [None]
  - ENDODONTIC PROCEDURE [None]
  - FACE AND MOUTH X-RAY ABNORMAL [None]
  - FACIAL PAIN [None]
  - FISTULA [None]
  - GASTROINTESTINAL OBSTRUCTION [None]
  - GENERAL PHYSICAL HEALTH DETERIORATION [None]
  - GINGIVAL ERYTHEMA [None]
  - GINGIVAL SWELLING [None]
  - GRANULOMA [None]
  - HAEMATURIA [None]
  - ILEOSTOMY [None]
  - IMPAIRED HEALING [None]
  - INSOMNIA [None]
  - LOCALISED INFECTION [None]
  - MASS [None]
  - METASTASES TO BONE [None]
  - OSTEOMYELITIS [None]
  - OSTEONECROSIS OF JAW [None]
  - PAIN [None]
  - PAIN IN JAW [None]
  - PANCREATIC NEOPLASM [None]
  - PLANTAR FASCIITIS [None]
  - PURULENT DISCHARGE [None]
  - RASH PRURITIC [None]
  - SENSATION OF PRESSURE [None]
  - SWELLING FACE [None]
  - TOOTH EXTRACTION [None]
  - TRAUMATIC HAEMATOMA [None]
  - TUBERCULIN TEST POSITIVE [None]
